FAERS Safety Report 18816754 (Version 7)
Quarter: 2021Q3

REPORT INFORMATION
  Report Type: Report from Study
  Country: BE (occurrence: BE)
  Receive Date: 20210201
  Receipt Date: 20210806
  Transmission Date: 20211014
  Serious: Yes (Hospitalization, Other)
  Sender: FDA-Public Use
  Company Number: BE-JNJFOC-20210139525

PATIENT
  Age: 68 Year
  Sex: Male
  Weight: 65 kg

DRUGS (28)
  1. ROSUVASTATINE [ROSUVASTATIN CALCIUM] [Concomitant]
     Active Substance: ROSUVASTATIN CALCIUM
     Dosage: 40 MG, QD
     Dates: start: 20190722, end: 20191202
  2. BISOPROLOL [Concomitant]
     Active Substance: BISOPROLOL
     Dosage: 2.5 MG, BID
     Dates: start: 20191231, end: 20200804
  3. ACETYLSALICYLIC ACID [Suspect]
     Active Substance: ASPIRIN
     Indication: PERIPHERAL ARTERIAL OCCLUSIVE DISEASE
     Dosage: 80 MG, QD
     Dates: start: 20210206
  4. ADRENALINE [EPINEPHRINE] [Concomitant]
     Active Substance: EPINEPHRINE
     Dosage: 2 MG
     Dates: start: 20210125, end: 20210125
  5. ENOXAPARIN [Concomitant]
     Active Substance: ENOXAPARIN
     Dosage: 40 UNK
     Dates: start: 20210203, end: 20210205
  6. ACETYLSALICYLIC ACID [Suspect]
     Active Substance: ASPIRIN
     Indication: CARDIOVASCULAR EVENT PROPHYLAXIS
  7. PANTOPRAZOLE [Concomitant]
     Active Substance: PANTOPRAZOLE
     Dosage: 40 MG, QD
     Dates: start: 20190725, end: 20210122
  8. ALLOPURINOL. [Concomitant]
     Active Substance: ALLOPURINOL
     Dosage: 300 MG, QD
     Dates: start: 20140127
  9. PARACETAMOL [Concomitant]
     Active Substance: ACETAMINOPHEN
     Dosage: 1 G, QID
     Dates: start: 20190723, end: 20190926
  10. EFEDRINE HCL [Concomitant]
     Dosage: 6 MG, BID
     Dates: start: 20210429, end: 20210429
  11. FENYLEFRIN [Concomitant]
     Active Substance: PHENYLEPHRINE HYDROCHLORIDE
     Dosage: 0.05 MG, QID
     Dates: start: 20210429, end: 20210429
  12. ROSUVASTATINE [ROSUVASTATIN CALCIUM] [Concomitant]
     Active Substance: ROSUVASTATIN CALCIUM
     Dosage: 20 UNK
     Dates: start: 20191202
  13. AMLODIPINE [Concomitant]
     Active Substance: AMLODIPINE BESYLATE
     Dosage: 5 MG, QD
     Dates: start: 20191231
  14. XARELTO [Suspect]
     Active Substance: RIVAROXABAN
     Indication: CORONARY ARTERY DISEASE
     Dosage: 2.5 MG, BID
     Route: 048
     Dates: start: 20200702, end: 20210121
  15. RAMIPRIL. [Concomitant]
     Active Substance: RAMIPRIL
     Dosage: 5 MG, QD
     Dates: start: 20190912
  16. BISOPROLOL [Concomitant]
     Active Substance: BISOPROLOL
     Dosage: 2.5 MG, BID
     Dates: start: 20190724, end: 20191231
  17. PARACETAMOL [Concomitant]
     Active Substance: ACETAMINOPHEN
     Dosage: 1 G, PRN
     Dates: start: 20190926
  18. ENOXAPARIN [Concomitant]
     Active Substance: ENOXAPARIN
     Dosage: 40 MG, QD
     Dates: start: 20210124, end: 20210126
  19. XARELTO [Suspect]
     Active Substance: RIVAROXABAN
     Indication: CARDIOVASCULAR EVENT PROPHYLAXIS
     Route: 048
  20. PANTOPRAZOLE [Concomitant]
     Active Substance: PANTOPRAZOLE
     Dosage: 40 UNK
     Dates: start: 20210125, end: 20210125
  21. BISOPROLOL [Concomitant]
     Active Substance: BISOPROLOL
     Dosage: 5 UNK
     Dates: start: 20200805
  22. PANTOPRAZOLE [Concomitant]
     Active Substance: PANTOPRAZOLE
     Dosage: 40 MG, BID
     Dates: start: 20210122, end: 20210126
  23. RAMIPRIL. [Concomitant]
     Active Substance: RAMIPRIL
     Dosage: 2.5 MG, QD
     Dates: start: 20190415, end: 20190726
  24. ADRENALINE [EPINEPHRINE] [Concomitant]
     Active Substance: EPINEPHRINE
     Dosage: 1 MG, QD
     Dates: start: 20210429, end: 20210429
  25. SCOPOLAMINE BUTYLBRMIDE [Concomitant]
     Dosage: 20 MG, QD
     Dates: start: 20210429, end: 20210429
  26. XARELTO [Suspect]
     Active Substance: RIVAROXABAN
     Indication: PERIPHERAL ARTERIAL OCCLUSIVE DISEASE
     Dosage: 2.5 MG, BID
     Route: 048
     Dates: start: 20210216
  27. ACETYLSALICYLIC ACID [Suspect]
     Active Substance: ASPIRIN
     Indication: CORONARY ARTERY DISEASE
     Dosage: 80 MG, QD
     Dates: start: 20190429, end: 20210202
  28. ROSUVASTATINE [ROSUVASTATIN CALCIUM] [Concomitant]
     Active Substance: ROSUVASTATIN CALCIUM
     Dosage: 20 MG, QD
     Dates: start: 20191202

REACTIONS (4)
  - Colon cancer [Not Recovered/Not Resolved]
  - Microcytic anaemia [Recovered/Resolved with Sequelae]
  - Acute myocardial infarction [Recovered/Resolved]
  - Acute kidney injury [Recovered/Resolved]

NARRATIVE: CASE EVENT DATE: 20210121
